FAERS Safety Report 7250783-0 (Version None)
Quarter: 2011Q1

REPORT INFORMATION
  Report Type: 
  Country: None (occurrence: None)
  Receive Date: 20110128
  Receipt Date: 20110114
  Transmission Date: 20110831
  Serious: Yes (Hospitalization)
  Sender: FDA-Public Use
  Company Number: CH-ASTRAZENECA-2011SE03253

PATIENT
  Age: 69 Year
  Sex: Female

DRUGS (11)
  1. SEROQUEL XR [Suspect]
     Route: 048
     Dates: start: 20101228
  2. IBEROGAST [Concomitant]
  3. SEROQUEL XR [Suspect]
     Indication: BIPOLAR I DISORDER
     Dosage: 100-150 MG DAILY
     Route: 048
     Dates: start: 20100315, end: 20101201
  4. SEROQUEL XR [Suspect]
     Route: 048
     Dates: start: 20101210, end: 20101227
  5. CHONDROSULF [Concomitant]
  6. SEROQUEL XR [Suspect]
     Route: 048
     Dates: start: 20101203, end: 20101209
  7. ORFIRIL [Suspect]
     Dosage: 200-300MG
     Route: 048
     Dates: start: 20101203, end: 20101209
  8. SEROQUEL XR [Suspect]
     Route: 048
     Dates: start: 20101202
  9. ORFIRIL [Suspect]
     Route: 048
     Dates: start: 20101210
  10. NOVALGIN [Concomitant]
  11. ATACAND HCT [Suspect]
     Dosage: 16/12.5MG
     Route: 048
     Dates: start: 20100917, end: 20110104

REACTIONS (3)
  - DISORIENTATION [None]
  - CONFUSIONAL STATE [None]
  - HYPONATRAEMIA [None]
